FAERS Safety Report 15574085 (Version 2)
Quarter: 2018Q4

REPORT INFORMATION
  Report Type: Spontaneous
  Country: JP (occurrence: JP)
  Receive Date: 20181101
  Receipt Date: 20181121
  Transmission Date: 20190205
  Serious: Yes (Other)
  Sender: FDA-Public Use
  Company Number: JP-ABBVIE-18P-087-2540433-00

PATIENT
  Age: 70 Year
  Sex: Male

DRUGS (1)
  1. LEUPRORELIN ACETATE [Suspect]
     Active Substance: LEUPROLIDE ACETATE
     Indication: PROSTATE CANCER
     Dosage: 11.25 MG, Q3MONTHS
     Route: 058

REACTIONS (3)
  - Bone pain [Not Recovered/Not Resolved]
  - Metastases to bone [Unknown]
  - Osteoarthritis [Unknown]
